FAERS Safety Report 9169710 (Version 1)
Quarter: 2013Q1

REPORT INFORMATION
  Report Type: Spontaneous
  Country: AU (occurrence: AU)
  Receive Date: 20130318
  Receipt Date: 20130318
  Transmission Date: 20140127
  Serious: Yes (Other)
  Sender: FDA-Public Use
  Company Number: PHHY2013AU025085

PATIENT
  Age: 82 Year
  Sex: Male

DRUGS (8)
  1. OMEPRAZOLE [Suspect]
     Dosage: 20 MG, DAILY
     Route: 048
     Dates: start: 20121015
  2. CEFAZOLIN [Suspect]
     Dosage: 2 G, DAILY
     Route: 042
     Dates: start: 20121016
  3. ASPIRIN [Concomitant]
  4. ATORVASTATIN [Concomitant]
  5. CLEXANE [Concomitant]
  6. CLOPIDOGREL [Concomitant]
  7. DIGOXIN [Concomitant]
  8. METFORMIN [Concomitant]

REACTIONS (3)
  - Eosinophilia [Recovered/Resolved]
  - Leukocytosis [Recovered/Resolved]
  - Rash maculo-papular [Recovered/Resolved]
